FAERS Safety Report 4598234-9 (Version None)
Quarter: 2005Q1

REPORT INFORMATION
  Report Type: 
  Country: None (occurrence: None)
  Receive Date: 20050204
  Receipt Date: 20040511
  Transmission Date: 20050727
  Serious: Yes (Death, Other)
  Sender: FDA-Public Use
  Company Number: PHEH2004US05086

PATIENT
  Age: 60 Year
  Sex: Female

DRUGS (6)
  1. CLOZARIL [Suspect]
     Indication: SCHIZOPHRENIA
     Dosage: 300 MG/DAY, ORAL
     Route: 048
     Dates: start: 19940101, end: 20040419
  2. NEURONTIN [Concomitant]
  3. SYNTHROID [Concomitant]
  4. COGENTIN (BENZATROPINE SULFATE) [Concomitant]
  5. ZANTAC [Concomitant]
  6. PRIMIDONE [Concomitant]

REACTIONS (2)
  - DEATH [None]
  - VISUAL DISTURBANCE [None]
